FAERS Safety Report 5467610-4 (Version None)
Quarter: 2007Q3

REPORT INFORMATION
  Report Type: 
  Country: None (occurrence: None)
  Receive Date: 20070925
  Receipt Date: 20070911
  Transmission Date: 20080115
  Serious: Yes (Hospitalization)
  Sender: FDA-Public Use
  Company Number: DK-GENENTECH-245415

PATIENT
  Sex: Female
  Weight: 67 kg

DRUGS (4)
  1. HERCEPTIN [Suspect]
     Indication: BREAST CANCER
     Dates: start: 20060728, end: 20070710
  2. PENICILLIN G [Concomitant]
     Indication: INFECTION
     Dates: start: 20070615
  3. ZINACEF [Concomitant]
     Indication: INFECTION
  4. ROXITHROMYCIN [Concomitant]
     Indication: INFECTION
     Dates: start: 20070615

REACTIONS (4)
  - COUGH [None]
  - DYSPNOEA [None]
  - LOEFFLER'S SYNDROME [None]
  - PYREXIA [None]
